FAERS Safety Report 23850770 (Version 1)
Quarter: 2024Q2

REPORT INFORMATION
  Report Type: Report from Study
  Country: CO (occurrence: CO)
  Receive Date: 20240514
  Receipt Date: 20240514
  Transmission Date: 20240715
  Serious: Yes (Other)
  Sender: FDA-Public Use
  Company Number: CO-JNJFOC-20240523946

PATIENT
  Age: 73 Year
  Sex: Male
  Weight: 75 kg

DRUGS (2)
  1. IMBRUVICA [Suspect]
     Active Substance: IBRUTINIB
     Indication: Chronic lymphocytic leukaemia
     Route: 048
     Dates: start: 20200403
  2. JANSSEN COVID-19 VACCINE [Concomitant]
     Active Substance: AD26.COV2.S
     Indication: COVID-19 immunisation
     Route: 030
     Dates: start: 202104

REACTIONS (1)
  - Cholecystectomy [Unknown]

NARRATIVE: CASE EVENT DATE: 20240327
